FAERS Safety Report 9084161 (Version 1)
Quarter: 2013Q1

REPORT INFORMATION
  Report Type: Spontaneous
  Country: BR (occurrence: BR)
  Receive Date: 20130218
  Receipt Date: 20130218
  Transmission Date: 20140127
  Serious: Yes (Other)
  Sender: FDA-Public Use
  Company Number: PHHY2012BR068483

PATIENT
  Age: 72 Year
  Sex: Male
  Weight: 74 kg

DRUGS (9)
  1. AFINITOR [Suspect]
     Indication: RENAL CANCER
     Dosage: 1 DF, A DAY
     Route: 048
  2. AFINITOR [Suspect]
     Dosage: 0.5 DF, A DAY
     Route: 048
  3. ACTOS [Concomitant]
     Dosage: 150 MG, UNK
  4. DIOVAN [Concomitant]
     Dosage: 40 MG, UNK
  5. CRESTOR [Concomitant]
     Dosage: 10 MG, UNK
  6. FRONTAL [Concomitant]
     Dosage: 0.25 MG, UNK
  7. SECOTEX [Concomitant]
     Dosage: 0.25 MG, UNK
  8. CYMBALTA [Concomitant]
  9. APRESOLIN [Concomitant]

REACTIONS (5)
  - Hypotension [Recovered/Resolved]
  - Haemoptysis [Recovered/Resolved]
  - Blood pressure increased [Recovered/Resolved]
  - Rash [Recovered/Resolved]
  - Dyspnoea [Recovered/Resolved]
